FAERS Safety Report 10985663 (Version 1)
Quarter: 2015Q1

REPORT INFORMATION
  Report Type: Spontaneous
  Country: US (occurrence: None)
  Receive Date: 20150304
  Receipt Date: 20150304
  Transmission Date: 20150721
  Serious: Yes (Other)
  Sender: FDA-Public Use
  Company Number: 2014MGK012571

PATIENT
  Age: 43 Year
  Sex: Female

DRUGS (1)
  1. MONTELUKAST [Suspect]
     Active Substance: MONTELUKAST SODIUM
     Indication: ASTHMA
     Dosage: 10 MG, OD?DURATION 365 DAYS

REACTIONS (8)
  - Hepatitis [None]
  - Eosinophilia [None]
  - Allergic granulomatous angiitis [None]
  - Pyrexia [None]
  - Arthralgia [None]
  - Malaise [None]
  - Jaundice [None]
  - Blood bilirubin increased [None]
